FAERS Safety Report 6186442-5 (Version None)
Quarter: 2009Q2

REPORT INFORMATION
  Report Type: 
  Country: None (occurrence: None)
  Receive Date: 20090511
  Receipt Date: 20090504
  Transmission Date: 20091009
  Serious: Yes (Hospitalization, Disabling)
  Sender: FDA-Public Use
  Company Number: US-GENENTECH-280909

PATIENT
  Sex: Female
  Weight: 99.773 kg

DRUGS (1)
  1. RITUXAN [Suspect]
     Indication: NON-HODGKIN'S LYMPHOMA
     Dosage: 375 MG/M2, 1/WEEK
     Route: 041
     Dates: start: 20090121

REACTIONS (5)
  - DYSPNOEA [None]
  - MALAISE [None]
  - NEUROPATHY PERIPHERAL [None]
  - PRURITUS [None]
  - RASH [None]
